FAERS Safety Report 14167046 (Version 2)
Quarter: 2018Q1

REPORT INFORMATION
  Report Type: Report from Study
  Country: None (occurrence: US)
  Receive Date: 20171108
  Receipt Date: 20180125
  Transmission Date: 20180508
  Serious: Yes (Hospitalization, Other)
  Sender: FDA-Public Use
  Company Number: US-ABBVIE-17K-163-2152506-00

PATIENT
  Age: 49 Year
  Sex: Female

DRUGS (2)
  1. HUMIRA [Suspect]
     Active Substance: ADALIMUMAB
     Indication: RHEUMATOID ARTHRITIS
     Dosage: MISSED ON TUESDAY WHEN HOSPITALIZED IN NOVEMBER
     Route: 058
     Dates: start: 20171011, end: 2017
  2. HUMIRA [Suspect]
     Active Substance: ADALIMUMAB
     Dosage: ADMINISTERED ON FRIDAY SINCE LEAVING HOSPITAL
     Route: 058
     Dates: start: 2017

REACTIONS (5)
  - Arthralgia [Unknown]
  - Joint stiffness [Recovered/Resolved]
  - Volvulus [Unknown]
  - Joint swelling [Recovered/Resolved]
  - Abdominal hernia [Unknown]

NARRATIVE: CASE EVENT DATE: 201710
